FAERS Safety Report 9644034 (Version 1)
Quarter: 2013Q4

REPORT INFORMATION
  Report Type: Spontaneous
  Country: GB (occurrence: GB)
  Receive Date: 20131024
  Receipt Date: 20131024
  Transmission Date: 20140711
  Serious: Yes (Other)
  Sender: FDA-Public Use
  Company Number: PHHY2013GB119307

PATIENT
  Age: 55 Year
  Sex: Male
  Weight: 111.57 kg

DRUGS (2)
  1. METFORMIN [Suspect]
     Indication: TYPE 2 DIABETES MELLITUS
     Dosage: 500 MG, UNK
     Route: 048
     Dates: start: 201102, end: 201111
  2. PERINDOPRIL [Concomitant]
     Dosage: 4 MG, UNK

REACTIONS (5)
  - Headache [Recovered/Resolved]
  - Memory impairment [Recovered/Resolved with Sequelae]
  - Pain in extremity [Not Recovered/Not Resolved]
  - Feeling abnormal [Recovered/Resolved with Sequelae]
  - Mental impairment [Unknown]
